FAERS Safety Report 10061720 (Version 1)
Quarter: 2014Q2

REPORT INFORMATION
  Report Type: Spontaneous
  Country: SG (occurrence: None)
  Receive Date: 20140403
  Receipt Date: 20140403
  Transmission Date: 20141212
  Serious: Yes (Hospitalization)
  Sender: FDA-Public Use
  Company Number: 2269035

PATIENT
  Age: 34 Year
  Sex: 0

DRUGS (7)
  1. EPHEDRINE SULFATE [Suspect]
     Indication: BLOOD PRESSURE
  2. FENTANYL [Concomitant]
  3. MORPHINE [Concomitant]
  4. BUPIVACAINE [Concomitant]
  5. OXYTOCIN [Concomitant]
  6. I.V. SOLUTIONS (UNKNOWN) [Concomitant]
  7. PHENYLEPHRINE [Concomitant]

REACTIONS (4)
  - Cerebral vasoconstriction [None]
  - Subarachnoid haemorrhage [None]
  - Exposure during pregnancy [None]
  - Caesarean section [None]
